FAERS Safety Report 8084010-1 (Version None)
Quarter: 2012Q1

REPORT INFORMATION
  Report Type: 
  Country: None (occurrence: None)
  Receive Date: 20120128
  Receipt Date: 20110125
  Transmission Date: 20120608
  Serious: No
  Sender: FDA-Public Use
  Company Number: US-ABBOTT-11P-163-0701195-00

PATIENT
  Sex: Female

DRUGS (1)
  1. HUMIRA [Suspect]
     Indication: PRODUCT USED FOR UNKNOWN INDICATION
     Dosage: ON HUMIRA FOR OVER TWO YEARS.  STRENGTH WAS NOT PROVIDED.

REACTIONS (3)
  - SKIN INJURY [None]
  - FUNGAL SKIN INFECTION [None]
  - PSORIASIS [None]
